FAERS Safety Report 7935365-7 (Version None)
Quarter: 2011Q4

REPORT INFORMATION
  Report Type: 
  Country: None (occurrence: None)
  Receive Date: 20111122
  Receipt Date: 20111111
  Transmission Date: 20120403
  Serious: Yes (Hospitalization, Other)
  Sender: FDA-Public Use
  Company Number: US-RB-034264-11

PATIENT
  Age: 35 Year
  Sex: Female

DRUGS (3)
  1. SUBOXONE [Suspect]
     Dosage: DOSING DETAILS UNKNOWN
     Route: 065
     Dates: start: 20110101
  2. SUBOXONE [Suspect]
     Indication: DRUG DEPENDENCE
     Dosage: UNKNOWN DOSING INFORMATION
     Route: 065
     Dates: start: 20100101, end: 20110101
  3. SUBOXONE [Suspect]
     Indication: DRUG DEPENDENCE
     Dosage: DOSING DETAILS UNKNOWN
     Route: 065
     Dates: end: 20110501

REACTIONS (5)
  - UNDERDOSE [None]
  - HAEMORRHOIDS [None]
  - GALLBLADDER DISORDER [None]
  - MATERNAL EXPOSURE DURING PREGNANCY [None]
  - INTENTIONAL DRUG MISUSE [None]
